FAERS Safety Report 7887922-4 (Version None)
Quarter: 2011Q4

REPORT INFORMATION
  Report Type: 
  Country: None (occurrence: None)
  Receive Date: 20111101
  Receipt Date: 20111027
  Transmission Date: 20120403
  Serious: Yes (Life-Threatening)
  Sender: FDA-Public Use
  Company Number: AUR-APL-2011-05612

PATIENT
  Sex: Male

DRUGS (11)
  1. CLOZAPINE [Concomitant]
  2. DIPYRIDAMOLE [Concomitant]
  3. LOPERAMIDE [Concomitant]
  4. SIMVASTATIN [Concomitant]
  5. ASPIRIN [Concomitant]
  6. OMEPRAZOLE [Concomitant]
  7. MIRTAZAPINE [Suspect]
     Indication: DEPRESSED MOOD
     Dosage: 15 MG (15 MG,1 IN 1 D),ORAL ; 30 MG (30 MG,1 IN 1 D),ORAL
     Route: 048
     Dates: start: 20111006, end: 20111010
  8. MIRTAZAPINE [Suspect]
     Indication: DEPRESSED MOOD
     Dosage: 15 MG (15 MG,1 IN 1 D),ORAL ; 30 MG (30 MG,1 IN 1 D),ORAL
     Route: 048
     Dates: start: 20111003, end: 20111006
  9. BENZODIAZEPINES NOS (BENZODIAZEPINES DERIVATIVES) [Concomitant]
  10. AUGMENTIN '125' [Concomitant]
  11. HYOSCINE HYDROBROMIDE (HYOSCINE HYDROBROMIDE) [Concomitant]

REACTIONS (1)
  - NEUROLEPTIC MALIGNANT SYNDROME [None]
